FAERS Safety Report 5049899-9 (Version None)
Quarter: 2006Q3

REPORT INFORMATION
  Report Type: 
  Country: None (occurrence: None)
  Receive Date: 20060706
  Receipt Date: 20060619
  Transmission Date: 20061208
  Serious: Yes (Hospitalization)
  Sender: FDA-Public Use
  Company Number: 2006-132

PATIENT
  Age: 75 Year
  Sex: Female

DRUGS (1)
  1. AZITHROMYCIN [Suspect]
     Indication: RESPIRATORY TRACT INFECTION
     Dosage: 500MG DAILY ORALLY 3 DAYS
     Route: 048

REACTIONS (6)
  - CHOLELITHIASIS [None]
  - DIARRHOEA [None]
  - FATIGUE [None]
  - GALLBLADDER DISORDER [None]
  - HEPATOTOXICITY [None]
  - RENAL IMPAIRMENT [None]
